FAERS Safety Report 25644830 (Version 1)
Quarter: 2025Q3

REPORT INFORMATION
  Report Type: Spontaneous
  Country: US (occurrence: None)
  Receive Date: 20250804
  Receipt Date: 20250804
  Transmission Date: 20251020
  Serious: No
  Sender: FDA-CTU
  Company Number: None

PATIENT
  Age: 49 Year
  Sex: Female
  Weight: 69.75 kg

DRUGS (1)
  1. TERBINAFINE HYDROCHLORIDE [Suspect]
     Active Substance: TERBINAFINE HYDROCHLORIDE
     Indication: Fungal foot infection
     Dosage: 1 TABLET DAILY ORAL
     Route: 048
     Dates: start: 20250717, end: 20250801

REACTIONS (10)
  - Nasopharyngitis [None]
  - Oropharyngeal pain [None]
  - Arthralgia [None]
  - Respiratory tract congestion [None]
  - Asthenia [None]
  - Dizziness [None]
  - Periorbital swelling [None]
  - Eye pruritus [None]
  - Rash pruritic [None]
  - Paraesthesia [None]

NARRATIVE: CASE EVENT DATE: 20250730
